FAERS Safety Report 6879618-2 (Version None)
Quarter: 2010Q3

REPORT INFORMATION
  Report Type: 
  Country: None (occurrence: None)
  Receive Date: 20100728
  Receipt Date: 20100714
  Transmission Date: 20110219
  Serious: Yes (Other)
  Sender: FDA-Public Use
  Company Number: FI-WYE-G06000310

PATIENT
  Sex: Male

DRUGS (10)
  1. RELISTOR [Suspect]
     Indication: CONSTIPATION
     Dosage: 8 MG EVERY 1 TOT
     Route: 058
     Dates: start: 20100413, end: 20100413
  2. RELISTOR [Suspect]
     Dosage: 8 MG EVERY 1 TOT
     Route: 058
     Dates: start: 20100418, end: 20100418
  3. LAXOBERON [Concomitant]
     Indication: CONSTIPATION
     Route: 048
  4. PRIMPERAN TAB [Concomitant]
     Indication: NAUSEA
     Dosage: 30 MG PER 24 HOURS
     Route: 058
  5. SERENASE [Concomitant]
     Indication: NAUSEA
     Dosage: 7.5 MG PER 24 HOURS
     Route: 058
  6. KETALAR [Concomitant]
     Indication: PAIN
     Dosage: 100 MG PER 24 HOURS
     Route: 058
  7. ATIVAN [Concomitant]
     Indication: PAIN
     Dosage: 4 MG PER 24 HOURS
     Route: 058
  8. ATIVAN [Concomitant]
     Indication: ANXIOLYTIC THERAPY
  9. FRAGMIN [Concomitant]
     Indication: THROMBOSIS PROPHYLAXIS
     Route: 058
  10. MORPHINE [Concomitant]
     Indication: PAIN
     Dosage: 300 MG PER 24 HOURS
     Route: 058

REACTIONS (3)
  - ABDOMINAL PAIN [None]
  - CYANOSIS [None]
  - DRUG INEFFECTIVE [None]
